FAERS Safety Report 18465137 (Version 2)
Quarter: 2021Q1

REPORT INFORMATION
  Report Type: Spontaneous
  Country: DE (occurrence: DE)
  Receive Date: 20201105
  Receipt Date: 20210108
  Transmission Date: 20210419
  Serious: No
  Sender: FDA-Public Use
  Company Number: DE-B.I. PHARMACEUTICALS,INC./RIDGEFIELD-2018-12-002909

PATIENT
  Sex: Male

DRUGS (132)
  1. RAMIPRIL. [Suspect]
     Active Substance: RAMIPRIL
     Dosage: 1 DOSAGE FORM
     Route: 048
  2. METFORMIN HYDROCHLORIDE. [Suspect]
     Active Substance: METFORMIN HYDROCHLORIDE
     Indication: PRODUCT USED FOR UNKNOWN INDICATION
     Dosage: ONCE DAILY
     Route: 065
  3. CARVEDILOL. [Suspect]
     Active Substance: CARVEDILOL
     Route: 065
  4. ELIQUIS [Suspect]
     Active Substance: APIXABAN
     Route: 048
  5. ELIQUIS [Suspect]
     Active Substance: APIXABAN
     Route: 065
  6. INEGY [Suspect]
     Active Substance: EZETIMIBE\SIMVASTATIN
     Route: 065
  7. RAMIDIPINE [Suspect]
     Active Substance: NAFTIFINE HYDROCHLORIDE
     Route: 048
  8. SAXAGLIPTIN HYDROCHLORIDE. [Suspect]
     Active Substance: SAXAGLIPTIN HYDROCHLORIDE
     Dosage: #3
     Route: 048
  9. SAXAGLIPTIN HYDROCHLORIDE. [Suspect]
     Active Substance: SAXAGLIPTIN HYDROCHLORIDE
     Dosage: #5
     Route: 048
  10. HYDROCHLOROTHIAZIDE. [Suspect]
     Active Substance: HYDROCHLOROTHIAZIDE
     Route: 048
  11. MORNIFLUMATE [Suspect]
     Active Substance: MORNIFLUMATE
     Indication: PRODUCT USED FOR UNKNOWN INDICATION
     Route: 065
  12. JARDIANCE [Suspect]
     Active Substance: EMPAGLIFLOZIN
     Route: 048
  13. FLOMAX [Suspect]
     Active Substance: TAMSULOSIN HYDROCHLORIDE
     Route: 065
  14. EMPAGLIFLOZIN [Suspect]
     Active Substance: EMPAGLIFLOZIN
     Route: 065
  15. EMPAGLIFLOZIN [Suspect]
     Active Substance: EMPAGLIFLOZIN
     Route: 065
  16. ALNA OCAS [Suspect]
     Active Substance: TAMSULOSIN HYDROCHLORIDE
     Indication: PRODUCT USED FOR UNKNOWN INDICATION
     Route: 065
  17. RAMIPRIL. [Suspect]
     Active Substance: RAMIPRIL
     Route: 065
  18. RAMIPRIL. [Suspect]
     Active Substance: RAMIPRIL
     Dosage: DRUG INTERVAL DOSAGE UNIT NUMBER: 1 DAY
     Route: 048
  19. CARVEDILOL. [Suspect]
     Active Substance: CARVEDILOL
     Route: 065
  20. ELIQUIS [Suspect]
     Active Substance: APIXABAN
     Route: 048
  21. ELIQUIS [Suspect]
     Active Substance: APIXABAN
     Route: 048
  22. ELIQUIS [Suspect]
     Active Substance: APIXABAN
     Route: 048
  23. ELIQUIS [Suspect]
     Active Substance: APIXABAN
     Route: 048
  24. ELIQUIS [Suspect]
     Active Substance: APIXABAN
     Route: 065
  25. AMLODIPINE BESILATE [Suspect]
     Active Substance: AMLODIPINE BESYLATE
     Route: 048
  26. INEGY [Suspect]
     Active Substance: EZETIMIBE\SIMVASTATIN
     Route: 048
  27. INEGY [Suspect]
     Active Substance: EZETIMIBE\SIMVASTATIN
     Route: 065
  28. INEGY [Suspect]
     Active Substance: EZETIMIBE\SIMVASTATIN
     Route: 065
  29. SAXAGLIPTIN HYDROCHLORIDE. [Suspect]
     Active Substance: SAXAGLIPTIN HYDROCHLORIDE
     Dosage: #7
  30. SIMVASTATIN. [Suspect]
     Active Substance: SIMVASTATIN
     Indication: PRODUCT USED FOR UNKNOWN INDICATION
     Route: 065
  31. FLOMAX [Suspect]
     Active Substance: TAMSULOSIN HYDROCHLORIDE
     Dosage: UNK
     Route: 065
  32. HYDROCHLOROTHIAZIDE. [Suspect]
     Active Substance: HYDROCHLOROTHIAZIDE
     Route: 048
  33. FLOMAX [Suspect]
     Active Substance: TAMSULOSIN HYDROCHLORIDE
     Indication: PRODUCT USED FOR UNKNOWN INDICATION
     Route: 065
  34. ONGLYZA [Suspect]
     Active Substance: SAXAGLIPTIN HYDROCHLORIDE
     Indication: PRODUCT USED FOR UNKNOWN INDICATION
  35. EZETIMIBE/SIMVASTATIN [Suspect]
     Active Substance: EZETIMIBE\SIMVASTATIN
     Indication: PRODUCT USED FOR UNKNOWN INDICATION
  36. RAMIPRIL. [Suspect]
     Active Substance: RAMIPRIL
     Route: 065
  37. METFORMIN HYDROCHLORIDE. [Suspect]
     Active Substance: METFORMIN HYDROCHLORIDE
     Dosage: #1 #4 ) METFORMIN HYDROCHLORIDE (METFORMIN HYDROCHLORIDE) TABLET; REGIMEN #2 #4 ) METFORMIN HYDROCHL
     Route: 065
  38. METFORMIN HYDROCHLORIDE. [Suspect]
     Active Substance: METFORMIN HYDROCHLORIDE
     Dosage: #7
     Route: 048
  39. ELIQUIS [Suspect]
     Active Substance: APIXABAN
     Route: 048
  40. AMLODIPINE BESILATE [Suspect]
     Active Substance: AMLODIPINE BESYLATE
     Indication: PRODUCT USED FOR UNKNOWN INDICATION
     Route: 065
  41. INEGY [Suspect]
     Active Substance: EZETIMIBE\SIMVASTATIN
     Route: 065
  42. INEGY [Suspect]
     Active Substance: EZETIMIBE\SIMVASTATIN
     Route: 048
  43. SAXAGLIPTIN HYDROCHLORIDE. [Suspect]
     Active Substance: SAXAGLIPTIN HYDROCHLORIDE
     Dosage: ONCE DAILY
     Route: 048
  44. JARDIANCE [Suspect]
     Active Substance: EMPAGLIFLOZIN
     Dosage: 5 MG, UNK
     Route: 065
  45. JARDIANCE [Suspect]
     Active Substance: EMPAGLIFLOZIN
     Dosage: 5 MG, UNK
     Route: 065
  46. TAMSULOSINA [TAMSULOSIN] [Suspect]
     Active Substance: TAMSULOSIN
     Route: 065
  47. TAMSULOSINA [TAMSULOSIN] [Suspect]
     Active Substance: TAMSULOSIN
     Route: 065
  48. RAMIPRIL. [Suspect]
     Active Substance: RAMIPRIL
     Route: 065
  49. RAMIPRIL. [Suspect]
     Active Substance: RAMIPRIL
     Route: 048
  50. RAMIPRIL. [Suspect]
     Active Substance: RAMIPRIL
     Route: 048
  51. METFORMIN HYDROCHLORIDE. [Suspect]
     Active Substance: METFORMIN HYDROCHLORIDE
     Dosage: UNKNOWN FREQ.
     Route: 048
  52. CARVEDILOL. [Suspect]
     Active Substance: CARVEDILOL
     Route: 065
  53. ELIQUIS [Suspect]
     Active Substance: APIXABAN
     Route: 048
  54. ELIQUIS [Suspect]
     Active Substance: APIXABAN
     Route: 048
  55. ELIQUIS [Suspect]
     Active Substance: APIXABAN
     Route: 048
  56. AMLODIPINE BESILATE [Suspect]
     Active Substance: AMLODIPINE BESYLATE
     Route: 048
  57. AMLODIPINE BESILATE [Suspect]
     Active Substance: AMLODIPINE BESYLATE
     Route: 048
  58. AMLODIPINE BESILATE [Suspect]
     Active Substance: AMLODIPINE BESYLATE
     Route: 048
  59. INEGY [Suspect]
     Active Substance: EZETIMIBE\SIMVASTATIN
     Indication: PRODUCT USED FOR UNKNOWN INDICATION
     Route: 048
  60. INEGY [Suspect]
     Active Substance: EZETIMIBE\SIMVASTATIN
     Route: 048
  61. RAMIDIPINE [Suspect]
     Active Substance: NAFTIFINE HYDROCHLORIDE
     Dosage: ONCE DAILY
     Route: 065
  62. SAXAGLIPTIN HYDROCHLORIDE. [Suspect]
     Active Substance: SAXAGLIPTIN HYDROCHLORIDE
     Indication: PRODUCT USED FOR UNKNOWN INDICATION
     Dosage: UNKNOWN FREQ.
     Route: 065
  63. HYDROCHLOROTHIAZIDE. [Suspect]
     Active Substance: HYDROCHLOROTHIAZIDE
     Dosage: UNK
     Route: 065
  64. FLOMAX [Suspect]
     Active Substance: TAMSULOSIN HYDROCHLORIDE
     Route: 065
  65. EMPAGLIFLOZIN [Suspect]
     Active Substance: EMPAGLIFLOZIN
     Route: 048
  66. ALNA OCAS [Suspect]
     Active Substance: TAMSULOSIN HYDROCHLORIDE
     Route: 065
  67. RAMIPRIL. [Suspect]
     Active Substance: RAMIPRIL
     Indication: PRODUCT USED FOR UNKNOWN INDICATION
     Route: 065
  68. RAMIPRIL. [Suspect]
     Active Substance: RAMIPRIL
     Route: 048
  69. METFORMIN HYDROCHLORIDE. [Suspect]
     Active Substance: METFORMIN HYDROCHLORIDE
     Dosage: #6
     Route: 048
  70. METFORMIN HYDROCHLORIDE. [Suspect]
     Active Substance: METFORMIN HYDROCHLORIDE
     Dosage: #8
     Route: 048
  71. ELIQUIS [Suspect]
     Active Substance: APIXABAN
     Route: 048
  72. AMLODIPINE BESILATE [Suspect]
     Active Substance: AMLODIPINE BESYLATE
     Route: 065
  73. AMLODIPINE BESILATE [Suspect]
     Active Substance: AMLODIPINE BESYLATE
     Route: 048
  74. RAMIDIPINE [Suspect]
     Active Substance: NAFTIFINE HYDROCHLORIDE
     Route: 048
  75. SIMVASTATIN. [Suspect]
     Active Substance: SIMVASTATIN
     Route: 048
  76. SIMVASTATIN. [Suspect]
     Active Substance: SIMVASTATIN
     Route: 048
  77. HYDROCHLOROTHIAZIDE. [Suspect]
     Active Substance: HYDROCHLOROTHIAZIDE
     Indication: PRODUCT USED FOR UNKNOWN INDICATION
     Dosage: UNK
     Route: 065
  78. JARDIANCE [Suspect]
     Active Substance: EMPAGLIFLOZIN
     Route: 065
  79. RAMIPRIL. [Suspect]
     Active Substance: RAMIPRIL
     Route: 048
  80. RAMIPRIL. [Suspect]
     Active Substance: RAMIPRIL
     Route: 048
  81. RAMIPRIL. [Suspect]
     Active Substance: RAMIPRIL
     Route: 048
  82. CARVEDILOL. [Suspect]
     Active Substance: CARVEDILOL
     Indication: PRODUCT USED FOR UNKNOWN INDICATION
     Route: 065
  83. ELIQUIS [Suspect]
     Active Substance: APIXABAN
     Route: 048
  84. ELIQUIS [Suspect]
     Active Substance: APIXABAN
     Route: 065
  85. RAMIDIPINE [Suspect]
     Active Substance: NAFTIFINE HYDROCHLORIDE
     Indication: PRODUCT USED FOR UNKNOWN INDICATION
     Dosage: UNKNOWN FREQ.
     Route: 048
  86. HYDROCHLOROTHIAZIDE. [Suspect]
     Active Substance: HYDROCHLOROTHIAZIDE
     Route: 065
  87. HYDROCHLOROTHIAZIDE. [Suspect]
     Active Substance: HYDROCHLOROTHIAZIDE
     Route: 065
  88. JARDIANCE [Suspect]
     Active Substance: EMPAGLIFLOZIN
     Indication: PRODUCT USED FOR UNKNOWN INDICATION
     Route: 048
  89. JARDIANCE [Suspect]
     Active Substance: EMPAGLIFLOZIN
     Dosage: 50 MILLIGRAM
     Route: 048
  90. JARDIANCE [Suspect]
     Active Substance: EMPAGLIFLOZIN
     Dosage: UNK
     Route: 065
  91. JARDIANCE [Suspect]
     Active Substance: EMPAGLIFLOZIN
     Route: 048
  92. JARDIANCE [Suspect]
     Active Substance: EMPAGLIFLOZIN
     Dosage: 5 MILLIGRAM (10 MG, Q4+6H)
     Route: 048
  93. FLOMAX [Suspect]
     Active Substance: TAMSULOSIN HYDROCHLORIDE
     Route: 065
  94. EMPAGLIFLOZIN [Suspect]
     Active Substance: EMPAGLIFLOZIN
     Indication: PRODUCT USED FOR UNKNOWN INDICATION
     Route: 065
  95. EMPAGLIFLOZIN [Suspect]
     Active Substance: EMPAGLIFLOZIN
     Route: 065
  96. RAMIPRIL. [Suspect]
     Active Substance: RAMIPRIL
     Dosage: UNK, UNKNOWN FREQ.
     Route: 048
  97. RAMIPRIL. [Suspect]
     Active Substance: RAMIPRIL
     Route: 065
  98. RAMIPRIL. [Suspect]
     Active Substance: RAMIPRIL
     Route: 065
  99. CARVEDILOL. [Suspect]
     Active Substance: CARVEDILOL
     Route: 065
  100. ELIQUIS [Suspect]
     Active Substance: APIXABAN
     Route: 048
  101. INEGY [Suspect]
     Active Substance: EZETIMIBE\SIMVASTATIN
     Route: 048
  102. INEGY [Suspect]
     Active Substance: EZETIMIBE\SIMVASTATIN
     Route: 048
  103. SAXAGLIPTIN HYDROCHLORIDE. [Suspect]
     Active Substance: SAXAGLIPTIN HYDROCHLORIDE
     Dosage: #6
  104. SIMVASTATIN. [Suspect]
     Active Substance: SIMVASTATIN
     Route: 048
  105. SIMVASTATIN. [Suspect]
     Active Substance: SIMVASTATIN
     Route: 048
  106. JARDIANCE [Suspect]
     Active Substance: EMPAGLIFLOZIN
     Route: 065
  107. JARDIANCE [Suspect]
     Active Substance: EMPAGLIFLOZIN
     Dosage: 10 MG, Q4+6H
     Route: 048
  108. JARDIANCE [Suspect]
     Active Substance: EMPAGLIFLOZIN
     Route: 065
  109. TAMSULOSINA [TAMSULOSIN] [Suspect]
     Active Substance: TAMSULOSIN
     Indication: PRODUCT USED FOR UNKNOWN INDICATION
     Route: 065
  110. EMPAGLIFLOZIN [Suspect]
     Active Substance: EMPAGLIFLOZIN
     Route: 065
  111. RAMIPRIL. [Suspect]
     Active Substance: RAMIPRIL
     Route: 048
  112. RAMIPRIL. [Suspect]
     Active Substance: RAMIPRIL
     Dosage: UNK, UNKNOWN FREQ.
     Route: 048
  113. METFORMIN HYDROCHLORIDE. [Suspect]
     Active Substance: METFORMIN HYDROCHLORIDE
     Dosage: #1 #3 ) ALNA OCAS (TAMSULOSIN) FORMULATION UNKNOWN; REGIMEN #2
     Route: 048
  114. METFORMIN HYDROCHLORIDE. [Suspect]
     Active Substance: METFORMIN HYDROCHLORIDE
     Route: 048
  115. AMLODIPINE;RAMIPRIL [Suspect]
     Active Substance: AMLODIPINE\RAMIPRIL
     Indication: PRODUCT USED FOR UNKNOWN INDICATION
     Route: 048
  116. CARVEDILOL. [Suspect]
     Active Substance: CARVEDILOL
     Route: 065
  117. ELIQUIS [Suspect]
     Active Substance: APIXABAN
     Indication: PRODUCT USED FOR UNKNOWN INDICATION
     Route: 065
  118. INEGY [Suspect]
     Active Substance: EZETIMIBE\SIMVASTATIN
     Route: 048
  119. INEGY [Suspect]
     Active Substance: EZETIMIBE\SIMVASTATIN
     Route: 065
  120. INEGY [Suspect]
     Active Substance: EZETIMIBE\SIMVASTATIN
     Route: 065
  121. SAXAGLIPTIN HYDROCHLORIDE. [Suspect]
     Active Substance: SAXAGLIPTIN HYDROCHLORIDE
     Dosage: #2
     Route: 065
  122. SIMVASTATIN. [Suspect]
     Active Substance: SIMVASTATIN
     Route: 048
  123. FLOMAX [Suspect]
     Active Substance: TAMSULOSIN HYDROCHLORIDE
     Indication: PRODUCT USED FOR UNKNOWN INDICATION
     Route: 065
  124. HYDROCHLOROTHIAZIDE. [Suspect]
     Active Substance: HYDROCHLOROTHIAZIDE
     Route: 065
  125. JARDIANCE [Suspect]
     Active Substance: EMPAGLIFLOZIN
     Route: 065
  126. FLOMAX [Suspect]
     Active Substance: TAMSULOSIN HYDROCHLORIDE
     Route: 065
  127. EMPAGLIFLOZIN [Suspect]
     Active Substance: EMPAGLIFLOZIN
     Route: 048
  128. EMPAGLIFLOZIN [Suspect]
     Active Substance: EMPAGLIFLOZIN
     Dosage: UNK
     Route: 065
  129. EMPAGLIFLOZIN [Suspect]
     Active Substance: EMPAGLIFLOZIN
     Route: 065
  130. EMPAGLIFLOZIN [Suspect]
     Active Substance: EMPAGLIFLOZIN
     Route: 065
  131. EMPAGLIFLOZIN [Suspect]
     Active Substance: EMPAGLIFLOZIN
     Route: 065
  132. NAFTIFINE HYDROCHLORIDE. [Suspect]
     Active Substance: NAFTIFINE HYDROCHLORIDE
     Indication: PRODUCT USED FOR UNKNOWN INDICATION

REACTIONS (3)
  - Prescribed overdose [Unknown]
  - Muscle spasms [Unknown]
  - Myalgia [Unknown]
